FAERS Safety Report 6854429-2 (Version None)
Quarter: 2010Q3

REPORT INFORMATION
  Report Type: 
  Country: None (occurrence: None)
  Receive Date: 20100717
  Receipt Date: 20080104
  Transmission Date: 20110219
  Serious: No
  Sender: FDA-Public Use
  Company Number: US-PFIZER INC-2008002099

PATIENT
  Sex: Female
  Weight: 76.2 kg

DRUGS (9)
  1. CHANTIX [Suspect]
     Indication: SMOKING CESSATION THERAPY
     Dates: start: 20071224
  2. EVISTA [Concomitant]
     Indication: OSTEOPOROSIS
  3. ALL OTHER THERAPEUTIC PRODUCTS [Concomitant]
     Indication: INSULIN RESISTANCE
  4. TOPROL-XL [Concomitant]
  5. SYNTHROID [Concomitant]
     Indication: THYROID DISORDER
  6. KLONOPIN [Concomitant]
     Indication: SLEEP DISORDER
  7. LEXAPRO [Concomitant]
     Indication: SLEEP DISORDER
  8. ACTONEL [Concomitant]
     Indication: OSTEOPOROSIS
  9. MULTI-VITAMINS [Concomitant]

REACTIONS (7)
  - ABDOMINAL DISTENSION [None]
  - ABDOMINAL PAIN UPPER [None]
  - CONSTIPATION [None]
  - DRUG DOSE OMISSION [None]
  - NAUSEA [None]
  - REFLUX GASTRITIS [None]
  - VOMITING [None]
